FAERS Safety Report 8164471-X (Version None)
Quarter: 2012Q1

REPORT INFORMATION
  Report Type: 
  Country: None (occurrence: None)
  Receive Date: 20120224
  Receipt Date: 20120208
  Transmission Date: 20120608
  Serious: Yes (Other)
  Sender: FDA-Public Use
  Company Number: CHPA2012US002786

PATIENT
  Age: 66 Year
  Sex: Male

DRUGS (2)
  1. MAALOX UNKNOWN [Suspect]
     Indication: ABDOMINAL DISCOMFORT
     Dosage: UNK, UNK
     Route: 048
  2. DRUG USED IN DIABETES [Concomitant]
     Indication: DIABETES MELLITUS
     Dosage: UNK, UNK
     Route: 048

REACTIONS (3)
  - DIZZINESS [None]
  - TONSILLITIS [None]
  - GASTRIC POLYPS [None]
